FAERS Safety Report 7029557-1 (Version None)
Quarter: 2010Q4

REPORT INFORMATION
  Report Type: 
  Country: None (occurrence: None)
  Receive Date: 20101001
  Receipt Date: 20100910
  Transmission Date: 20110411
  Serious: Yes (Other)
  Sender: FDA-Public Use
  Company Number: 7010198

PATIENT
  Age: 40 Year
  Sex: Female

DRUGS (1)
  1. NOVOTHYRAL 75(NOVOTHYRAL) (LEVOTHYROXINE SODIUM, LIOTHYRONIN SODIUM, L [Suspect]
     Indication: AUTOIMMUNE THYROIDITIS
     Dosage: 75 MCG ORAL
     Route: 048
     Dates: start: 20040501, end: 20100101

REACTIONS (3)
  - INFECTION SUSCEPTIBILITY INCREASED [None]
  - LEUKOPENIA [None]
  - WEIGHT LOSS POOR [None]
